FAERS Safety Report 6161130-X (Version None)
Quarter: 2009Q2

REPORT INFORMATION
  Report Type: 
  Country: None (occurrence: None)
  Receive Date: 20090417
  Receipt Date: 20090417
  Transmission Date: 20091009
  Serious: Yes (Life-Threatening)
  Sender: FDA-Public Use
  Company Number: None

PATIENT
  Age: 59 Year
  Sex: Female
  Weight: 62.1428 kg

DRUGS (1)
  1. CELEBREX [Suspect]
     Indication: ARTHRALGIA
     Dosage: 1 CAPSULE 1 EVERY DAY
     Dates: start: 20090311, end: 20090321

REACTIONS (7)
  - BURNING SENSATION [None]
  - DRUG HYPERSENSITIVITY [None]
  - FEELING HOT [None]
  - HEART RATE INCREASED [None]
  - RASH ERYTHEMATOUS [None]
  - RASH GENERALISED [None]
  - THROAT TIGHTNESS [None]
